FAERS Safety Report 24127590 (Version 2)
Quarter: 2025Q2

REPORT INFORMATION
  Report Type: Spontaneous
  Country: US (occurrence: US)
  Receive Date: 20240723
  Receipt Date: 20250610
  Transmission Date: 20250717
  Serious: No
  Sender: SANOFI AVENTIS
  Company Number: US-SA-SAC20240719000686

PATIENT
  Age: 68 Year
  Sex: Male

DRUGS (4)
  1. DUPIXENT [Suspect]
     Active Substance: DUPILUMAB
     Indication: Dermatitis atopic
     Dosage: 300 MG, QOW
     Route: 058
     Dates: start: 202312
  2. DUPIXENT [Suspect]
     Active Substance: DUPILUMAB
     Indication: Neurodermatitis
     Dosage: 600 MG, QOW
     Route: 058
  3. PROZAC [Concomitant]
     Active Substance: FLUOXETINE HYDROCHLORIDE
  4. MSM [Concomitant]
     Active Substance: DIMETHYL SULFONE

REACTIONS (15)
  - Dry skin [Unknown]
  - Nasal congestion [Not Recovered/Not Resolved]
  - Haemorrhage [Not Recovered/Not Resolved]
  - Dyspnoea [Unknown]
  - Sinus congestion [Unknown]
  - Skin exfoliation [Unknown]
  - Peripheral swelling [Unknown]
  - Nasopharyngitis [Unknown]
  - Pruritus [Not Recovered/Not Resolved]
  - Skin fissures [Unknown]
  - Pain of skin [Unknown]
  - Dry eye [Unknown]
  - Rash [Not Recovered/Not Resolved]
  - Arthralgia [Unknown]
  - Incorrect dose administered [Unknown]

NARRATIVE: CASE EVENT DATE: 20240101
